FAERS Safety Report 5932751-1 (Version None)
Quarter: 2008Q4

REPORT INFORMATION
  Report Type: 
  Country: None (occurrence: None)
  Receive Date: 20081027
  Receipt Date: 20081027
  Transmission Date: 20090506
  Serious: Yes (Hospitalization)
  Sender: FDA-Public Use
  Company Number: None

PATIENT
  Sex: Female
  Weight: 145.5 kg

DRUGS (7)
  1. CARBOPLATIN [Suspect]
     Dosage: 710 MG
  2. TAXOL [Suspect]
     Dosage: 350 MG
  3. ATIVAN [Concomitant]
  4. COMPAZINE [Concomitant]
  5. DECADRON [Concomitant]
  6. IBUPROFEN TABLETS [Concomitant]
  7. ZOCOR [Concomitant]

REACTIONS (4)
  - FEBRILE NEUTROPENIA [None]
  - HAEMOGLOBIN DECREASED [None]
  - UPPER RESPIRATORY TRACT INFECTION [None]
  - WHITE BLOOD CELL COUNT DECREASED [None]
